FAERS Safety Report 9173499 (Version 1)
Quarter: 2013Q1

REPORT INFORMATION
  Report Type: Spontaneous
  Country: GB (occurrence: None)
  Receive Date: 20130314
  Receipt Date: 20130314
  Transmission Date: 20140127
  Serious: Yes (Other)
  Sender: FDA-Public Use
  Company Number: 2013-03571

PATIENT
  Age: 55 Year
  Sex: Female
  Weight: 90 kg

DRUGS (12)
  1. QUINAPRIL [Suspect]
     Indication: PRODUCT USED FOR UNKNOWN INDICATION
     Dates: start: 20121108, end: 20130101
  2. QUININE (QUININE) [Concomitant]
  3. ATENOLOL (ATENOLOL) [Concomitant]
  4. GLICLAZIDE (GLICLAZIDE) [Concomitant]
  5. LANSOPRAZOLE (LANSOPRAZOLE) [Concomitant]
  6. METFORMIN (METFORMIN) [Concomitant]
  7. NAPROXEN (NAPROXEN) [Concomitant]
  8. SIMVASTATIN (SIMVASTATIN) [Concomitant]
  9. BETAMETHASONE VALERATE (BETAMETHASONE VALERATE) [Concomitant]
  10. CLOBETASONE BUTYRATE (CLOBETASONE BUTYRATE) [Concomitant]
  11. DOUBLEBASE (ISOPROPYL MYRISTATE, PARAFFIN, LIQUID) [Concomitant]
  12. HYDROCORTISONE (HYDROCORTISONE) [Concomitant]

REACTIONS (2)
  - Palpitations [None]
  - Product substitution issue [None]
